FAERS Safety Report 8291224-4 (Version None)
Quarter: 2012Q2

REPORT INFORMATION
  Report Type: 
  Country: None (occurrence: None)
  Receive Date: 20120417
  Receipt Date: 20120411
  Transmission Date: 20120825
  Serious: Yes (Hospitalization, Other)
  Sender: FDA-Public Use
  Company Number: US-BAYER-2011-111459

PATIENT
  Age: 33 Year
  Sex: Female
  Weight: 108.84 kg

DRUGS (8)
  1. DIAMOX [Concomitant]
     Indication: VISUAL IMPAIRMENT
     Dosage: UNK
     Dates: start: 20020101, end: 20081201
  2. PROMETHEGAN [Concomitant]
     Dosage: UNK
     Dates: start: 20070714
  3. FLONASE [Concomitant]
     Dosage: UNK
     Dates: start: 20070612
  4. YASMIN [Suspect]
     Indication: CONTRACEPTION
     Dosage: UNK
     Dates: start: 20030701, end: 20070701
  5. YASMIN [Suspect]
     Indication: MENSTRUATION IRREGULAR
  6. ACETAZOLAMIDE [Concomitant]
     Dosage: UNK
     Dates: start: 20070611
  7. PREDNISONE TAB [Concomitant]
     Dosage: UNK
     Dates: start: 20070619
  8. LEVAQUIN [Concomitant]
     Dosage: UNK
     Dates: start: 20070618

REACTIONS (6)
  - BLINDNESS [None]
  - CAVERNOUS SINUS THROMBOSIS [None]
  - FOREIGN BODY REACTION [None]
  - GRANULOMA [None]
  - HERNIA [None]
  - BENIGN NEOPLASM OF SKIN [None]
